FAERS Safety Report 21310356 (Version 2)
Quarter: 2023Q1

REPORT INFORMATION
  Report Type: Report from Study
  Country: US (occurrence: None)
  Receive Date: 20220909
  Receipt Date: 20230105
  Transmission Date: 20230417
  Serious: Yes (Other)
  Sender: FDA-Public Use
  Company Number: US-Merck Healthcare KGaA-9348368

PATIENT
  Age: 71 Year
  Sex: Male

DRUGS (1)
  1. REBIF [Suspect]
     Active Substance: INTERFERON BETA-1A
     Indication: Multiple sclerosis
     Route: 058
     Dates: start: 20020903

REACTIONS (9)
  - Hip arthroplasty [Unknown]
  - Sciatica [Unknown]
  - Musculoskeletal pain [Unknown]
  - Neuralgia [Unknown]
  - Paraesthesia [Unknown]
  - Muscular weakness [Unknown]
  - Burning sensation [Unknown]
  - Intervertebral disc degeneration [Unknown]
  - Muscle spasms [Unknown]

NARRATIVE: CASE EVENT DATE: 20221224
